FAERS Safety Report 8384849 (Version 1)
Quarter: 2020Q3

REPORT INFORMATION
  Report Type: Spontaneous
  Country: US (occurrence: US)
  Receive Date: 20120202
  Receipt Date: 20120202
  Transmission Date: 20201105
  Serious: No
  Sender: FDA-Public Use
  Company Number: None

PATIENT
  Age: 41 Year
  Sex: Male
  Weight: 58.97 kg

DRUGS (3)
  1. HYOSCYAMINE. [Suspect]
     Active Substance: HYOSCYAMINE
     Indication: ABDOMINAL DISCOMFORT
     Dosage: 1 PILL TWICE DAILY PO
     Dates: start: 20111123, end: 20120107
  2. HYOSCYAMINE. [Suspect]
     Active Substance: HYOSCYAMINE
     Indication: VOMITING
     Dosage: 1 PILL TWICE DAILY PO
     Dates: start: 20111123, end: 20120107
  3. HYOSCYAMINE. [Suspect]
     Active Substance: HYOSCYAMINE
     Indication: NAUSEA
     Dosage: 1 PILL TWICE DAILY PO
     Dates: start: 20111123, end: 20120107

REACTIONS (2)
  - Mood altered [None]
  - Depression [None]

NARRATIVE: CASE EVENT DATE: 20111123
